FAERS Safety Report 5333692-3 (Version None)
Quarter: 2007Q2

REPORT INFORMATION
  Report Type: 
  Country: None (occurrence: None)
  Receive Date: 20070524
  Receipt Date: 20070514
  Transmission Date: 20071010
  Serious: Yes (Death, Life-Threatening, Hospitalization)
  Sender: FDA-Public Use
  Company Number: B0459577A

PATIENT
  Age: 94 Year
  Sex: Male
  Weight: 70 kg

DRUGS (5)
  1. LAMICTAL [Suspect]
     Indication: STATUS EPILEPTICUS
     Dosage: 25MG PER DAY
     Route: 048
     Dates: start: 20070127, end: 20070206
  2. LOVENOX [Concomitant]
     Dosage: .4ML PER DAY
     Route: 058
     Dates: start: 20070122, end: 20070131
  3. PRETERAX [Concomitant]
     Dosage: 1UNIT PER DAY
     Route: 048
     Dates: start: 20070124, end: 20070131
  4. KARDEGIC [Concomitant]
     Dosage: 160MG PER DAY
     Route: 048
     Dates: start: 20070122, end: 20070224
  5. TIAPRIDAL [Concomitant]
     Indication: AGITATION
     Route: 048
     Dates: start: 20070123, end: 20070131

REACTIONS (8)
  - BLOOD CREATININE INCREASED [None]
  - BLOOD UREA INCREASED [None]
  - DEATH [None]
  - DYSPHAGIA [None]
  - GENERAL PHYSICAL HEALTH DETERIORATION [None]
  - OEDEMA PERIPHERAL [None]
  - RENAL FAILURE ACUTE [None]
  - TERMINAL STATE [None]
